FAERS Safety Report 18733975 (Version 3)
Quarter: 2021Q1

REPORT INFORMATION
  Report Type: Spontaneous
  Country: US (occurrence: US)
  Receive Date: 20210113
  Receipt Date: 20210315
  Transmission Date: 20210419
  Serious: Yes (Other)
  Sender: FDA-Public Use
  Company Number: US-AUROBINDO-AUR-APL-2020-053749

PATIENT
  Age: 76 Year
  Sex: Female

DRUGS (1)
  1. FLUCONAZOLE TABLETS 50 MG [Suspect]
     Active Substance: FLUCONAZOLE
     Indication: FUNGAL INFECTION
     Dosage: 1 DOSAGE FORM, AS NEEDED
     Route: 048
     Dates: start: 20201012, end: 202011

REACTIONS (5)
  - Product substitution issue [Unknown]
  - Insomnia [Recovered/Resolved]
  - Limb discomfort [Recovered/Resolved]
  - Liver injury [Recovered/Resolved]
  - Hepatic pain [Recovered/Resolved]

NARRATIVE: CASE EVENT DATE: 20201012
